FAERS Safety Report 7994382-1 (Version None)
Quarter: 2011Q4

REPORT INFORMATION
  Report Type: 
  Country: None (occurrence: None)
  Receive Date: 20111220
  Receipt Date: 20111207
  Transmission Date: 20120403
  Serious: Yes (Hospitalization, Other)
  Sender: FDA-Public Use
  Company Number: CA-ELI_LILLY_AND_COMPANY-CA201112002274

PATIENT
  Age: 54 Year
  Sex: Female

DRUGS (10)
  1. SINGULAIR [Concomitant]
  2. SYMBICORT [Concomitant]
  3. TYLENOL W/ CODEINE NO. 3 [Concomitant]
  4. PLAQUENIL [Concomitant]
  5. FORTEO [Suspect]
     Indication: OSTEOPOROSIS
     Dosage: 20 UG, QD
     Route: 058
     Dates: start: 20091214
  6. PREDNISONE [Concomitant]
  7. ATROVENT [Concomitant]
  8. THEO-DUR [Concomitant]
  9. VENTOLIN [Concomitant]
  10. NEXIUM [Concomitant]

REACTIONS (3)
  - ASTHMA [None]
  - PNEUMONIA [None]
  - RESPIRATORY TRACT INFECTION [None]
